FAERS Safety Report 12155286 (Version 4)
Quarter: 2018Q2

REPORT INFORMATION
  Report Type: Report from Study
  Country: US (occurrence: US)
  Receive Date: 20160307
  Receipt Date: 20180528
  Transmission Date: 20180711
  Serious: Yes (Hospitalization, Other)
  Sender: FDA-Public Use
  Company Number: US-AMGEN-USASL2015139944

PATIENT
  Age: 26 Year
  Sex: Male
  Weight: 99.4 kg

DRUGS (12)
  1. VINCRISTINE [Concomitant]
     Active Substance: VINCRISTINE
     Indication: ACUTE LYMPHOCYTIC LEUKAEMIA RECURRENT
     Dosage: UNK
     Route: 042
  2. DEXAMETHASONE. [Concomitant]
     Active Substance: DEXAMETHASONE
     Indication: ACUTE LYMPHOCYTIC LEUKAEMIA RECURRENT
     Dosage: UNK
  3. BLINCYTO [Suspect]
     Active Substance: BLINATUMOMAB
     Indication: ACUTE LYMPHOCYTIC LEUKAEMIA RECURRENT
     Dosage: UNK
     Route: 042
     Dates: start: 20151206, end: 20160704
  4. MTX [Concomitant]
     Active Substance: METHOTREXATE SODIUM
     Indication: ACUTE LYMPHOCYTIC LEUKAEMIA RECURRENT
     Dosage: UNK
     Route: 037
  5. CYTOXAN [Concomitant]
     Active Substance: CYCLOPHOSPHAMIDE
     Indication: ACUTE LYMPHOCYTIC LEUKAEMIA RECURRENT
     Dosage: UNK
  6. CYTARABINE. [Concomitant]
     Active Substance: CYTARABINE
     Indication: ACUTE LYMPHOCYTIC LEUKAEMIA RECURRENT
     Dosage: UNK
  7. LEUCOVORIN. [Concomitant]
     Active Substance: LEUCOVORIN
     Indication: ACUTE LYMPHOCYTIC LEUKAEMIA RECURRENT
     Dosage: UNK
  8. NEULASTA [Suspect]
     Active Substance: PEGFILGRASTIM
     Indication: PRODUCT USED FOR UNKNOWN INDICATION
     Dosage: UNK
     Route: 065
     Dates: start: 20170411
  9. ZINECARD [Concomitant]
     Active Substance: DEXRAZOXANE HYDROCHLORIDE
     Dosage: UNK
  10. PREDNISONE. [Concomitant]
     Active Substance: PREDNISONE
     Indication: ACUTE LYMPHOCYTIC LEUKAEMIA RECURRENT
     Dosage: UNK
  11. DAUNORUBICIN [Concomitant]
     Active Substance: DAUNORUBICIN
     Indication: ACUTE LYMPHOCYTIC LEUKAEMIA RECURRENT
     Dosage: UNK
  12. PEGASPARGASE [Concomitant]
     Active Substance: PEGASPARGASE
     Indication: ACUTE LYMPHOCYTIC LEUKAEMIA RECURRENT
     Dosage: UNK

REACTIONS (27)
  - Catheter site injury [Unknown]
  - Upper respiratory tract infection [Unknown]
  - Subdural haematoma [Unknown]
  - Acute lymphocytic leukaemia recurrent [Unknown]
  - Hypogammaglobulinaemia [Unknown]
  - Bacteroides bacteraemia [Unknown]
  - Sinusitis [Unknown]
  - Peritoneal abscess [Unknown]
  - Mucosal inflammation [Recovered/Resolved]
  - Neutropenic colitis [Recovered/Resolved]
  - Perirectal abscess [Unknown]
  - Escherichia sepsis [Recovering/Resolving]
  - Haematuria traumatic [Unknown]
  - Pruritus [Unknown]
  - Hyperglycaemia [Recovered/Resolved]
  - Bradycardia [Recovering/Resolving]
  - Metapneumovirus infection [Unknown]
  - Sepsis [Unknown]
  - Febrile neutropenia [Recovered/Resolved]
  - Skin discolouration [Not Recovered/Not Resolved]
  - Astrovirus test positive [Unknown]
  - Thrombocytopenia [Unknown]
  - Urinary retention [Unknown]
  - Dysuria [Unknown]
  - Rectal abscess [Unknown]
  - Stenotrophomonas sepsis [Unknown]
  - Red man syndrome [Unknown]

NARRATIVE: CASE EVENT DATE: 20151216
